FAERS Safety Report 6533776-8 (Version None)
Quarter: 2010Q1

REPORT INFORMATION
  Report Type: 
  Country: None (occurrence: None)
  Receive Date: 20100111
  Receipt Date: 20090409
  Transmission Date: 20100710
  Serious: No
  Sender: FDA-Public Use
  Company Number: US-ABBOTT-09P-163-0567669-00

PATIENT
  Age: 59 Year
  Sex: Female

DRUGS (12)
  1. VICODIN [Suspect]
     Indication: DRUG USE FOR UNKNOWN INDICATION
     Route: 048
  2. IMODIUM A-D [Suspect]
     Indication: DIARRHOEA
     Dosage: 2-8MG DAILY
     Route: 048
     Dates: start: 20081101
  3. IMODIUM A-D [Suspect]
     Indication: FAECES DISCOLOURED
  4. BENADRYL [Suspect]
     Indication: DRUG USE FOR UNKNOWN INDICATION
  5. ZANTAC [Concomitant]
     Indication: GASTROOESOPHAGEAL REFLUX DISEASE
     Dosage: 1 DOSE
     Dates: start: 20080101
  6. NEXIUM [Concomitant]
     Indication: GASTROOESOPHAGEAL REFLUX DISEASE
     Dosage: 1 DOSE
     Dates: start: 20080101
  7. ADVAIR DISKUS 100/50 [Concomitant]
     Indication: ASTHMA
     Dosage: 1 DOSE
     Dates: start: 20050101
  8. PROAIR HFA [Concomitant]
     Indication: ASTHMA
     Dates: start: 20080101
  9. LOVAZA [Concomitant]
     Indication: DRUG USE FOR UNKNOWN INDICATION
  10. VITAMIN B COMPLEX CAP [Concomitant]
     Indication: DRUG USE FOR UNKNOWN INDICATION
     Dosage: 1 DOSE
     Dates: start: 20080101
  11. MULTI-VITAMIN [Concomitant]
     Indication: NUTRITIONAL SUPPORT
     Dosage: 1 DOSE
     Dates: start: 20090201
  12. LASIX [Concomitant]
     Indication: DIURETIC THERAPY
     Dosage: 1 DOSE
     Dates: start: 20080801

REACTIONS (2)
  - INSOMNIA [None]
  - PSYCHOMOTOR HYPERACTIVITY [None]
